FAERS Safety Report 19656392 (Version 1)
Quarter: 2021Q3

REPORT INFORMATION
  Report Type: Spontaneous
  Country: US (occurrence: US)
  Receive Date: 20210804
  Receipt Date: 20210804
  Transmission Date: 20211014
  Serious: Yes (Hospitalization)
  Sender: FDA-Public Use
  Company Number: None

PATIENT
  Age: 36 Year
  Sex: Female
  Weight: 162 kg

DRUGS (4)
  1. IMDEVIMAB. [Suspect]
     Active Substance: IMDEVIMAB
     Indication: SARS-COV-2 TEST POSITIVE
     Dosage: ?          OTHER FREQUENCY:ONE TIME INFUSION;?
     Route: 041
     Dates: start: 20210803, end: 20210803
  2. CASIRIVIMAB. [Suspect]
     Active Substance: CASIRIVIMAB
     Indication: SARS-COV-2 TEST POSITIVE
     Dosage: ?          OTHER FREQUENCY:ONE TIME INFUSION;?
     Route: 041
     Dates: start: 20210803, end: 20210803
  3. CASIRIVIMAB INJECTION [Concomitant]
     Dates: start: 20210803, end: 20210803
  4. IMDEVIMAB INJECTION [Concomitant]
     Dates: start: 20210803, end: 20210803

REACTIONS (5)
  - Body temperature increased [None]
  - Tremor [None]
  - Infusion related reaction [None]
  - Chills [None]
  - Blood pressure increased [None]

NARRATIVE: CASE EVENT DATE: 20210803
